FAERS Safety Report 20211147 (Version 1)
Quarter: 2021Q4

REPORT INFORMATION
  Report Type: Other
  Country: None (occurrence: AT)
  Receive Date: 20211221
  Receipt Date: 20211221
  Transmission Date: 20220303
  Serious: Yes (Hospitalization, Other)
  Sender: FDA-Public Use
  Company Number: AT-ACI HealthCare Limited-2123226

PATIENT
  Sex: Male
  Weight: 0.8 kg

DRUGS (3)
  1. GABAPENTIN [Suspect]
     Active Substance: GABAPENTIN
     Indication: Foetal exposure during pregnancy
     Route: 064
  2. LORAZEPAM [Suspect]
     Active Substance: LORAZEPAM
     Route: 064
  3. QUETIAPINE [Suspect]
     Active Substance: QUETIAPINE
     Route: 064

REACTIONS (2)
  - Drug withdrawal syndrome neonatal [Unknown]
  - Foetal exposure during pregnancy [Unknown]
